FAERS Safety Report 21849037 (Version 1)
Quarter: 2023Q1

REPORT INFORMATION
  Report Type: Spontaneous
  Country: CA (occurrence: CA)
  Receive Date: 20230111
  Receipt Date: 20230111
  Transmission Date: 20230418
  Serious: Yes (Other)
  Sender: FDA-Public Use
  Company Number: CA-PFIZER INC-202300012473

PATIENT
  Age: 28 Year
  Sex: Female

DRUGS (3)
  1. SOLU-MEDROL [Suspect]
     Active Substance: METHYLPREDNISOLONE SODIUM SUCCINATE
     Indication: Neuromyelitis optica spectrum disorder
  2. AZATHIOPRINE [Suspect]
     Active Substance: AZATHIOPRINE
     Indication: Neuromyelitis optica spectrum disorder
     Route: 065
  3. HUMAN IMMUNOGLOBULIN G [Suspect]
     Active Substance: HUMAN IMMUNOGLOBULIN G
     Indication: Neuromyelitis optica spectrum disorder
     Route: 042

REACTIONS (10)
  - Anal incontinence [Unknown]
  - Dysaesthesia [Unknown]
  - Gait disturbance [Unknown]
  - Hiccups [Unknown]
  - Monoplegia [Unknown]
  - Neuromyelitis optica spectrum disorder [Unknown]
  - Off label use [Unknown]
  - Urinary incontinence [Unknown]
  - Vomiting [Unknown]
  - Maternal exposure during pregnancy [Unknown]
